FAERS Safety Report 7756234-1 (Version None)
Quarter: 2011Q3

REPORT INFORMATION
  Report Type: 
  Country: None (occurrence: None)
  Receive Date: 20110916
  Receipt Date: 20110913
  Transmission Date: 20111222
  Serious: No
  Sender: FDA-Public Use
  Company Number: US-ABBOTT-11P-163-0854672-00

PATIENT
  Sex: Male
  Weight: 88.53 kg

DRUGS (10)
  1. ASPIRIN [Concomitant]
     Indication: CARDIAC DISORDER
  2. ALLOPURINOL [Concomitant]
     Indication: RENAL DISORDER
  3. VASOTEC [Concomitant]
     Indication: CARDIAC DISORDER
  4. ACIPHEX [Concomitant]
     Indication: GASTRIC DISORDER
  5. UNKNOWN NOSE SPRAY [Concomitant]
     Indication: PRODUCT USED FOR UNKNOWN INDICATION
  6. XANAX [Concomitant]
     Indication: ANXIETY
  7. XALATAN [Concomitant]
     Indication: HYPERTENSION
  8. VYTORIN [Concomitant]
     Indication: BLOOD CHOLESTEROL INCREASED
  9. TRILIPIX [Suspect]
     Indication: BLOOD TRIGLYCERIDES INCREASED
     Dates: start: 20110801
  10. ELIGARD [Concomitant]
     Indication: BENIGN PROSTATIC HYPERPLASIA

REACTIONS (2)
  - FREQUENT BOWEL MOVEMENTS [None]
  - NAUSEA [None]
